FAERS Safety Report 6162498-0 (Version None)
Quarter: 2009Q2

REPORT INFORMATION
  Report Type: 
  Country: None (occurrence: None)
  Receive Date: 20090417
  Receipt Date: 20090401
  Transmission Date: 20091009
  Serious: Yes (Death)
  Sender: FDA-Public Use
  Company Number: 000512

PATIENT
  Sex: Male
  Weight: 70 kg

DRUGS (8)
  1. PROSTAVASIN /00501501/ (PROSTAVASIN) [Suspect]
     Indication: PERIPHERAL ARTERIAL OCCLUSIVE DISEASE
     Dosage: (20 UG TID INTRAVENOUS DRIP)
     Route: 041
  2. THEOPHYLLINE [Concomitant]
  3. LASIX [Concomitant]
  4. LANITOP [Concomitant]
  5. ALLOPURINOL [Concomitant]
  6. BRONCHOSPRAY [Concomitant]
  7. DECORTIN [Concomitant]
  8. ACETYLCYSTEINE [Concomitant]

REACTIONS (1)
  - CARDIAC ARREST [None]
